FAERS Safety Report 5392389-4 (Version None)
Quarter: 2007Q3

REPORT INFORMATION
  Report Type: 
  Country: None (occurrence: None)
  Receive Date: 20070720
  Receipt Date: 20070713
  Transmission Date: 20080115
  Serious: Yes (Hospitalization)
  Sender: FDA-Public Use
  Company Number: A0665325A

PATIENT
  Sex: Female
  Weight: 66 kg

DRUGS (3)
  1. SERETIDE [Suspect]
     Dosage: 2PUFF TWICE PER DAY
     Route: 055
     Dates: start: 20040101
  2. LOSARTAN WITH HYDROCHLOROTHIAZIDE [Concomitant]
     Dates: start: 19970101
  3. OMEPRAZOLE [Concomitant]
     Dates: start: 19970101

REACTIONS (3)
  - COUGH [None]
  - DRUG INEFFECTIVE [None]
  - INFLUENZA [None]
